FAERS Safety Report 17811130 (Version 1)
Quarter: 2020Q2

REPORT INFORMATION
  Report Type: Spontaneous
  Country: US (occurrence: US)
  Receive Date: 20200520
  Receipt Date: 20200520
  Transmission Date: 20200714
  Serious: Yes (Other)
  Sender: FDA-Public Use
  Company Number: None

PATIENT
  Sex: Female

DRUGS (1)
  1. ATORVASTATIN 10 MG [Suspect]
     Active Substance: ATORVASTATIN

REACTIONS (2)
  - Liver function test increased [None]
  - Treatment failure [None]
